FAERS Safety Report 22066225 (Version 1)
Quarter: 2023Q1

REPORT INFORMATION
  Report Type: Spontaneous
  Country: US (occurrence: None)
  Receive Date: 20230306
  Receipt Date: 20230306
  Transmission Date: 20230417
  Serious: Yes (Life-Threatening, Hospitalization)
  Sender: FDA-Public Use
  Company Number: None

PATIENT
  Age: 84 Year
  Sex: Female

DRUGS (1)
  1. TREMFYA [Suspect]
     Active Substance: GUSELKUMAB
     Indication: Polyarthritis
     Dosage: OTHER FREQUENCY : EVERY 8 WEEKS;?
     Route: 058
     Dates: start: 20220707, end: 20221129

REACTIONS (3)
  - Myocardial infarction [None]
  - Mitral valve disease [None]
  - Dental examination [None]
